FAERS Safety Report 20032685 (Version 1)
Quarter: 2021Q4

REPORT INFORMATION
  Report Type: Spontaneous
  Country: None (occurrence: US)
  Receive Date: 20211103
  Receipt Date: 20211103
  Transmission Date: 20220303
  Serious: Yes (Other)
  Sender: FDA-Public Use
  Company Number: US-GREER Laboratories, Inc.-2121450

PATIENT
  Age: 20 Year
  Sex: Male
  Weight: 64.545 kg

DRUGS (38)
  1. POLLENS - TREES, CEDAR, MOUNTAIN JUNIPERUS ASHEI [Suspect]
     Active Substance: JUNIPERUS ASHEI POLLEN
     Route: 023
     Dates: start: 20211018
  2. ARIZONA FREMONT COTTONWOOD POLLEN [Suspect]
     Active Substance: POPULUS FREMONTII POLLEN
     Route: 023
     Dates: start: 20211018
  3. WESTERN OAK POLLEN MIX [Suspect]
     Active Substance: QUERCUS AGRIFOLIA POLLEN\QUERCUS GARRYANA POLLEN\QUERCUS KELLOGGII POLLEN
     Route: 023
     Dates: start: 20211018
  4. POLLENS - TREES, OLIVE OLEA EUROPAEA [Suspect]
     Active Substance: OLEA EUROPAEA POLLEN
     Route: 023
     Dates: start: 20211018
  5. WESTERN SYCAMORE POLLEN [Suspect]
     Active Substance: PLATANUS RACEMOSA POLLEN
     Route: 023
     Dates: start: 20211018
  6. POLLENS - TREES, WALNUT, BLACK JUGLANS NIGRA [Suspect]
     Active Substance: JUGLANS NIGRA POLLEN
     Route: 023
     Dates: start: 20211018
  7. PALO VERDE POLLEN [Suspect]
     Active Substance: PARKINSONIA FLORIDA POLLEN
     Route: 023
     Dates: start: 20211018
  8. ALNUS RHOMBIFOLIA POLLEN [Suspect]
     Active Substance: ALNUS RHOMBIFOLIA POLLEN
     Route: 023
     Dates: start: 20211018
  9. ALNUS RHOMBIFOLIA POLLEN [Suspect]
     Active Substance: ALNUS RHOMBIFOLIA POLLEN
     Route: 023
     Dates: start: 20211018
  10. PEPPER TREE POLLEN [Suspect]
     Active Substance: SCHINUS MOLLE POLLEN
     Route: 023
     Dates: start: 20211018
  11. POLLENS - TREES, PINE MIX [Suspect]
     Active Substance: PINUS CONTORTA POLLEN\PINUS PONDEROSA POLLEN
     Route: 023
     Dates: start: 20211018
  12. ARROYO WILLOW POLLEN [Suspect]
     Active Substance: SALIX LASIOLEPIS POLLEN
     Route: 023
     Dates: start: 20211018
  13. QUEEN PALM POLLEN [Suspect]
     Active Substance: SYAGRUS ROMANZOFFIANA POLLEN
     Route: 023
     Dates: start: 20211018
  14. POLLENS - GRASSES, JOHNSON GRASS SORGHUM HALEPENSE [Suspect]
     Active Substance: SORGHUM HALEPENSE POLLEN
     Route: 023
     Dates: start: 20211018
  15. STANDARDIZED BERMUDA GRASS [Suspect]
     Active Substance: CYNODON DACTYLON POLLEN
     Route: 023
     Dates: start: 20211018
  16. STANDARDIZED TIMOTHY GRASS [Suspect]
     Active Substance: PHLEUM PRATENSE POLLEN
     Route: 023
     Dates: start: 20211018
  17. POLLENS - WEEDS AND GARDEN PLANTS, RUSSIAN THISTLE SALSOLA KALI [Suspect]
     Active Substance: SALSOLA KALI POLLEN
     Route: 023
     Dates: start: 20211018
  18. WINGSCALE [Suspect]
     Active Substance: ATRIPLEX CANESCENS POLLEN
     Route: 023
     Dates: start: 20211018
  19. SORREL/DOCK MIX [Suspect]
     Active Substance: RUMEX ACETOSELLA WHOLE\RUMEX CRISPUS
     Route: 023
     Dates: start: 20211018
  20. NETTLE [Suspect]
     Active Substance: URTICA DIOICA POLLEN
     Route: 023
     Dates: start: 20211018
  21. ARTEMISIA LUDOVICIANA POLLEN [Suspect]
     Active Substance: ARTEMISIA LUDOVICIANA POLLEN
     Route: 023
     Dates: start: 20211018
  22. WESTERN RAGWEED MIX [Suspect]
     Active Substance: AMBROSIA ACANTHICARPA POLLEN\AMBROSIA PSILOSTACHYA POLLEN
     Route: 023
     Dates: start: 20211018
  23. POLLENS - WEEDS AND GARDEN PLANTS, PIGWEED, ROUGH REDROOT AMARANTHUS R [Suspect]
     Active Substance: AMARANTHUS RETROFLEXUS POLLEN
     Route: 023
     Dates: start: 20211018
  24. POLLENS - WEEDS AND GARDEN PLANTS, COCKLEBUR XANTHIUM STRUMARIUM [Suspect]
     Active Substance: XANTHIUM STRUMARIUM POLLEN
     Route: 023
     Dates: start: 20211018
  25. POLLENS - WEEDS AND GARDEN PLANTS, LAMBS QUARTERS CHENOPODIUM ALBUM [Suspect]
     Active Substance: CHENOPODIUM ALBUM POLLEN
     Route: 023
     Dates: start: 20211018
  26. IODINE BUSH POLLEN [Suspect]
     Active Substance: ALLENROLFEA OCCIDENTALIS POLLEN
     Route: 023
     Dates: start: 20211018
  27. BURROBRUSH [Suspect]
     Active Substance: AMBROSIA SALSOLA POLLEN
     Route: 023
     Dates: start: 20211018
  28. BACCHARIS [Suspect]
     Active Substance: BACCHARIS HALIMIFOLIA POLLEN\BACCHARIS SAROTHROIDES WHOLE
     Route: 023
     Dates: start: 20211018
  29. BASSIA SCOPARIA POLLEN [Suspect]
     Active Substance: BASSIA SCOPARIA POLLEN
     Route: 023
     Dates: start: 20211018
  30. CANIS LUPUS FAMILIARIS SKIN [Suspect]
     Active Substance: CANIS LUPUS FAMILIARIS SKIN
     Route: 023
     Dates: start: 20211018
  31. STANDARDIZED CAT HAIR [Suspect]
     Active Substance: FELIS CATUS HAIR
     Route: 023
     Dates: start: 20211018
  32. DERMATOPHAGOIDES FARINAE\DERMATOPHAGOIDES PTERONYSSINUS [Suspect]
     Active Substance: DERMATOPHAGOIDES FARINAE\DERMATOPHAGOIDES PTERONYSSINUS
     Route: 023
     Dates: start: 20211018
  33. 2 COCKROACH MIX [Suspect]
     Active Substance: BLATELLA GERMANICA\PERIPLANETA AMERICANA
     Route: 023
     Dates: start: 20211018
  34. MOLDS, RUSTS AND SMUTS, ALTERNARIA TENUIS (ALTERNATA) [Suspect]
     Active Substance: ALTERNARIA ALTERNATA
     Route: 023
     Dates: start: 20211018
  35. ASPERGILLUS MIX [Suspect]
     Active Substance: ASPERGILLUS FLAVUS\ASPERGILLUS FUMIGATUS\ASPERGILLUS NIDULANS\ASPERGILLUS NIGER VAR. NIGER\EUROTIUM
     Route: 023
     Dates: start: 20211018
  36. CLADOSPORIUM HERBARUM [Suspect]
     Active Substance: CLADOSPORIUM HERBARUM
     Route: 023
     Dates: start: 20211018
  37. CLADOSPORIUM SPHAEROSPERMUM [Suspect]
     Active Substance: CLADOSPORIUM SPHAEROSPERMUM
     Route: 023
     Dates: start: 20211018
  38. PENICILLIUM MIX [Suspect]
     Active Substance: PENICILLIUM CAMEMBERTI\PENICILLIUM CHRYSOGENUM VAR. CHRYSOGENUM\PENICILLIUM DIGITATUM\PENICILLIUM RO
     Route: 023
     Dates: start: 20211018

REACTIONS (2)
  - Anaphylactic reaction [Recovered/Resolved]
  - Urticaria [Recovered/Resolved]

NARRATIVE: CASE EVENT DATE: 20211018
